FAERS Safety Report 6737739-9 (Version None)
Quarter: 2010Q2

REPORT INFORMATION
  Report Type: 
  Country: None (occurrence: None)
  Receive Date: 20100520
  Receipt Date: 20100507
  Transmission Date: 20101027
  Serious: Yes (Other)
  Sender: FDA-Public Use
  Company Number: 7004163

PATIENT
  Age: 46 Year
  Sex: Female

DRUGS (5)
  1. REBIF [Suspect]
     Indication: MULTIPLE SCLEROSIS
     Dosage: 44 MCG, 3 IN 1 WK, SUBCUTANEOUS
     Route: 058
     Dates: start: 20090709
  2. VITAMIN D [Concomitant]
  3. VITAMIN B6 [Concomitant]
  4. VITAMIN B12 (CYANOBALAMIN) [Concomitant]
  5. TYLENOL (PARACETAMOL) [Concomitant]

REACTIONS (8)
  - CHILLS [None]
  - EXOSTOSIS [None]
  - GAIT DISTURBANCE [None]
  - HEADACHE [None]
  - PAIN [None]
  - PYREXIA [None]
  - TENDON INJURY [None]
  - VISUAL ACUITY REDUCED [None]
